FAERS Safety Report 5768068-8 (Version None)
Quarter: 2008Q2

REPORT INFORMATION
  Report Type: 
  Country: None (occurrence: None)
  Receive Date: 20080612
  Receipt Date: 20080603
  Transmission Date: 20081010
  Serious: Yes (Hospitalization, Other)
  Sender: FDA-Public Use
  Company Number: NL-ABBOTT-08P-114-0455066-00

PATIENT
  Age: 51 Year
  Sex: Female
  Weight: 74 kg

DRUGS (7)
  1. VALPROIC ACID [Suspect]
     Indication: CONVULSION
  2. IRINOTECAN HCL [Interacting]
     Indication: GALLBLADDER CANCER
     Route: 042
  3. IRINOTECAN HCL [Interacting]
     Route: 042
  4. IRINOTECAN HCL [Interacting]
     Route: 042
  5. DEXAMETHASONE TAB [Concomitant]
     Indication: PROPHYLAXIS OF NAUSEA AND VOMITING
  6. GRANISETRON HCL [Concomitant]
     Indication: PROPHYLAXIS OF NAUSEA AND VOMITING
  7. ATROPINE SULFATE [Concomitant]
     Indication: CHOLINERGIC SYNDROME

REACTIONS (2)
  - DRUG INTERACTION [None]
  - HEPATOTOXICITY [None]
